FAERS Safety Report 16131102 (Version 5)
Quarter: 2019Q3

REPORT INFORMATION
  Report Type: Report from Study
  Country: US (occurrence: US)
  Receive Date: 20190328
  Receipt Date: 20190801
  Transmission Date: 20191004
  Serious: Yes (Other)
  Sender: FDA-Public Use
  Company Number: US-ACTELION-A-NJ2017-164314

PATIENT
  Age: 76 Year
  Sex: Female
  Weight: 106.12 kg

DRUGS (2)
  1. TRACLEER [Suspect]
     Active Substance: BOSENTAN
     Indication: PULMONARY ARTERIAL HYPERTENSION
     Dosage: 62.5 MG, BID
     Route: 048
  2. TRACLEER [Suspect]
     Active Substance: BOSENTAN
     Dosage: 62.5 MG, BID
     Route: 048

REACTIONS (26)
  - Decreased appetite [Unknown]
  - Head injury [Unknown]
  - Limb discomfort [Unknown]
  - Gait inability [Unknown]
  - Arthritis [Unknown]
  - Mobility decreased [Unknown]
  - Weight decreased [Unknown]
  - Abdominal discomfort [Unknown]
  - Arthralgia [Unknown]
  - Hypoacusis [Unknown]
  - Depression [Unknown]
  - Hypersensitivity [Unknown]
  - Influenza [Unknown]
  - Pain in extremity [Unknown]
  - Insomnia [Unknown]
  - Fall [Unknown]
  - Limb injury [Unknown]
  - Diarrhoea [Unknown]
  - Tinnitus [Unknown]
  - Dermatillomania [Unknown]
  - Alopecia [Unknown]
  - Pain [Unknown]
  - Nasopharyngitis [Unknown]
  - Amnesia [Unknown]
  - Anxiety [Unknown]
  - Fibromyalgia [Unknown]

NARRATIVE: CASE EVENT DATE: 20180414
